FAERS Safety Report 6857486-2 (Version None)
Quarter: 2010Q3

REPORT INFORMATION
  Report Type: 
  Country: None (occurrence: None)
  Receive Date: 20100719
  Receipt Date: 20080122
  Transmission Date: 20110219
  Serious: No
  Sender: FDA-Public Use
  Company Number: US-PFIZER INC-2008009040

PATIENT
  Sex: Female
  Weight: 83.9 kg

DRUGS (5)
  1. CHANTIX [Suspect]
     Indication: SMOKING CESSATION THERAPY
     Route: 048
     Dates: start: 20071101
  2. ALBUTEROL [Concomitant]
  3. ALBUTEROL [Concomitant]
  4. OMEGA-3 TRIGLYCERIDES [Concomitant]
  5. GARLIC [Concomitant]

REACTIONS (2)
  - DAYDREAMING [None]
  - RESPIRATORY DISORDER [None]
